FAERS Safety Report 5722612-5 (Version None)
Quarter: 2008Q2

REPORT INFORMATION
  Report Type: 
  Country: None (occurrence: None)
  Receive Date: 20080425
  Receipt Date: 20080414
  Transmission Date: 20081010
  Serious: Yes (Death)
  Sender: FDA-Public Use
  Company Number: OSCN-PR-0804L-0212

PATIENT
  Age: 42 Year
  Sex: Female

DRUGS (1)
  1. OMNISCAN [Suspect]
     Indication: DRUG USE FOR UNKNOWN INDICATION
     Dosage: MULTIPLE ADMINISTRATIONS, SINGLE DOSE, I.V.
     Route: 042

REACTIONS (8)
  - BLINDNESS [None]
  - CEREBROVASCULAR ACCIDENT [None]
  - HEPATIC CONGESTION [None]
  - HYPOTENSION [None]
  - MYOCARDIAL FIBROSIS [None]
  - NEPHROGENIC SYSTEMIC FIBROSIS [None]
  - OPTIC ISCHAEMIC NEUROPATHY [None]
  - VASCULAR CALCIFICATION [None]
